FAERS Safety Report 22399333 (Version 3)
Quarter: 2024Q1

REPORT INFORMATION
  Report Type: Spontaneous
  Country: CN (occurrence: CN)
  Receive Date: 20230602
  Receipt Date: 20240201
  Transmission Date: 20240409
  Serious: Yes (Other)
  Sender: FDA-Public Use
  Company Number: CN-SUN PHARMACEUTICAL INDUSTRIES LTD-2023R1-389961

PATIENT
  Age: 52 Year
  Sex: Female

DRUGS (1)
  1. IMATINIB [Suspect]
     Active Substance: IMATINIB
     Indication: Gastrointestinal stromal tumour
     Dosage: 0.4 GRAM, QD
     Route: 048

REACTIONS (2)
  - Hepatitis B reactivation [Recovered/Resolved]
  - Acute on chronic liver failure [Recovered/Resolved]
